FAERS Safety Report 7688122-3 (Version None)
Quarter: 2011Q3

REPORT INFORMATION
  Report Type: 
  Country: None (occurrence: None)
  Receive Date: 20110817
  Receipt Date: 20110804
  Transmission Date: 20111222
  Serious: No
  Sender: FDA-Public Use
  Company Number: BR-ELI_LILLY_AND_COMPANY-BR201107004876

PATIENT
  Sex: Female
  Weight: 60 kg

DRUGS (1)
  1. CYMBALTA [Suspect]
     Indication: DEPRESSION
     Dosage: 60 MG, EACH MORNING
     Route: 048
     Dates: end: 20110716

REACTIONS (4)
  - TACHYCARDIA [None]
  - POISONING [None]
  - VOMITING [None]
  - DRY MOUTH [None]
